FAERS Safety Report 7433304-9 (Version None)
Quarter: 2011Q2

REPORT INFORMATION
  Report Type: 
  Country: None (occurrence: None)
  Receive Date: 20110422
  Receipt Date: 20110412
  Transmission Date: 20111010
  Serious: Yes (Hospitalization)
  Sender: FDA-Public Use
  Company Number: US-ELI_LILLY_AND_COMPANY-US201103005337

PATIENT
  Sex: Female

DRUGS (6)
  1. FORTEO [Suspect]
     Dosage: 20 UG, DAILY (1/D)
     Route: 058
     Dates: start: 20100525, end: 20110301
  2. METRONIDAZOLE [Concomitant]
  3. WELLBUTRIN [Concomitant]
  4. CIPRO [Concomitant]
  5. SPIRIVA [Concomitant]
  6. ADVAIR HFA [Concomitant]

REACTIONS (1)
  - CROHN'S DISEASE [None]
